FAERS Safety Report 14159563 (Version 1)
Quarter: 2017Q4

REPORT INFORMATION
  Report Type: Spontaneous
  Country: US (occurrence: US)
  Receive Date: 20171106
  Receipt Date: 20171106
  Transmission Date: 20180321
  Serious: No
  Sender: FDA-Public Use
  Company Number: US-PFIZER INC-2017471960

PATIENT
  Age: 15 Year
  Sex: Female

DRUGS (1)
  1. EUCRISA [Suspect]
     Active Substance: CRISABOROLE
     Dosage: APPLIED TO AFFECTED AREAS/ APPLIED TO ARMS AND NECK AREAS AS NEEDED AS DIRECTED
     Route: 061
     Dates: start: 201710, end: 201710

REACTIONS (3)
  - Anxiety [Unknown]
  - Pruritus [Unknown]
  - Application site pain [Unknown]
